FAERS Safety Report 20479472 (Version 1)
Quarter: 2022Q1

REPORT INFORMATION
  Report Type: Spontaneous
  Country: US (occurrence: US)
  Receive Date: 20220216
  Receipt Date: 20220216
  Transmission Date: 20220424
  Serious: Yes (Other)
  Sender: FDA-Public Use
  Company Number: US-LUPIN PHARMACEUTICALS INC.-2022-02006

PATIENT
  Age: 54 Year
  Sex: Female

DRUGS (6)
  1. NITROFURANTOIN [Interacting]
     Active Substance: NITROFURANTOIN
     Indication: Urinary tract infection
     Dosage: UNK
     Route: 065
  2. APIXABAN [Suspect]
     Active Substance: APIXABAN
     Indication: Anticoagulant therapy
     Dosage: 5 MG, BID
     Route: 065
  3. WARFARIN [Interacting]
     Active Substance: WARFARIN
     Indication: Anticoagulant therapy
     Dosage: 15 MG, QD
     Route: 065
  4. WARFARIN [Interacting]
     Active Substance: WARFARIN
     Dosage: UNK, UPTITRATED TO 25 MG/DAY
     Route: 065
  5. WARFARIN [Interacting]
     Active Substance: WARFARIN
     Dosage: UNK, RE-INITIATED
     Route: 065
  6. ASPIRIN [Suspect]
     Active Substance: ASPIRIN
     Indication: Anticoagulant therapy
     Dosage: 325 MG, QD
     Route: 065

REACTIONS (2)
  - Anticoagulation drug level above therapeutic [Recovered/Resolved]
  - Drug interaction [Unknown]
